FAERS Safety Report 13699974 (Version 2)
Quarter: 2017Q3

REPORT INFORMATION
  Report Type: Report from Study
  Country: JP (occurrence: JP)
  Receive Date: 20170629
  Receipt Date: 20170706
  Transmission Date: 20171127
  Serious: Yes (Death)
  Sender: FDA-Public Use
  Company Number: JP-ROCHE-1956818

PATIENT
  Age: 37 Year
  Sex: Male

DRUGS (4)
  1. MELPHALAN. [Concomitant]
     Active Substance: MELPHALAN
  2. MYCOPHENOLATE MOFETIL. [Suspect]
     Active Substance: MYCOPHENOLATE MOFETIL
     Indication: PROPHYLAXIS AGAINST GRAFT VERSUS HOST DISEASE
     Dosage: THE FRACTIONATION DOSE FREQUENCY IS UNCERTAIN. ?DOSE INTERVAL UNCERTAINTY
     Route: 048
  3. FLUDARA [Concomitant]
     Active Substance: FLUDARABINE PHOSPHATE
  4. ANTI-THYMOCYTE GLOBULIN (EQUINE) [Concomitant]
     Active Substance: EQUINE THYMOCYTE IMMUNE GLOBULIN

REACTIONS (1)
  - Central nervous system lymphoma [Fatal]
